FAERS Safety Report 5564313-2 (Version None)
Quarter: 2008Q1

REPORT INFORMATION
  Report Type: 
  Country: None (occurrence: None)
  Receive Date: 20071214
  Receipt Date: 20071214
  Transmission Date: 20080703
  Serious: Yes (Hospitalization, Other)
  Sender: FDA-Public Use
  Company Number: None

PATIENT
  Sex: Male

DRUGS (1)
  1. HEPARIN LOCK-FLUSH [Suspect]

REACTIONS (3)
  - PHARMACEUTICAL PRODUCT COMPLAINT [None]
  - SERRATIA BACTERAEMIA [None]
  - THERAPEUTIC PRODUCT CONTAMINATION [None]
